FAERS Safety Report 23565956 (Version 1)
Quarter: 2024Q1

REPORT INFORMATION
  Report Type: Spontaneous
  Country: US (occurrence: None)
  Receive Date: 20240225
  Receipt Date: 20240225
  Transmission Date: 20240410
  Serious: Yes (Other)
  Sender: FDA-Public Use
  Company Number: None

PATIENT
  Sex: Female
  Weight: 57.6 kg

DRUGS (7)
  1. METRONIDAZOLE [Suspect]
     Active Substance: METRONIDAZOLE
     Indication: Bacterial vulvovaginitis
     Dosage: 1 APPLICATOR AT BEDTIME VAGINAL
     Route: 067
     Dates: start: 20230928, end: 20231002
  2. MULTI-VITAMIN [Concomitant]
     Active Substance: .ALPHA.-TOCOPHEROL ACETATE, DL-\ASCORBIC ACID\CYANOCOBALAMIN\FLUORIDE ION\FOLIC ACID\NIACIN\PYRIDOXI
  3. CALCUM WITH D3 [Concomitant]
  4. FLAXSEED [Concomitant]
     Active Substance: FLAX SEED
  5. EVENING PRIMROSE OIL\HERBALS [Concomitant]
     Active Substance: EVENING PRIMROSE OIL\HERBALS
  6. BLACKRURRANT [Concomitant]
  7. VITAMIN B COMPLEX [Concomitant]
     Active Substance: CYANOCOBALAMIN\DEXPANTHENOL\NIACINAMIDE\PYRIDOXINE HYDROCHLORIDE\RIBOFLAVIN 5^-PHOSPHATE SODIUM\THIA

REACTIONS (16)
  - Abdominal pain upper [None]
  - Dizziness [None]
  - Brain fog [None]
  - Fatigue [None]
  - Dyspnoea [None]
  - Nausea [None]
  - Hypoaesthesia [None]
  - Pain [None]
  - Muscular weakness [None]
  - Amenorrhoea [None]
  - Headache [None]
  - Hypoaesthesia [None]
  - Arthralgia [None]
  - Breast pain [None]
  - Pain in extremity [None]
  - Antinuclear antibody positive [None]

NARRATIVE: CASE EVENT DATE: 20231004
